FAERS Safety Report 9477118 (Version 4)
Quarter: 2013Q4

REPORT INFORMATION
  Report Type: Spontaneous
  Country: US (occurrence: US)
  Receive Date: 20130826
  Receipt Date: 20131016
  Transmission Date: 20140711
  Serious: No
  Sender: FDA-Public Use
  Company Number: US-PFIZER INC-2013244533

PATIENT
  Age: 22 Year
  Sex: Female
  Weight: 79.37 kg

DRUGS (1)
  1. ADVIL PM [Suspect]
     Indication: SLEEP DISORDER
     Dosage: 400/76 MG (TWO CAPLETS OF 200/38MG), 1X/DAY
     Route: 048
     Dates: start: 20130828, end: 20130829

REACTIONS (1)
  - Drug ineffective [Unknown]
